FAERS Safety Report 12496055 (Version 6)
Quarter: 2017Q1

REPORT INFORMATION
  Report Type: Report from Study
  Country: DE (occurrence: DE)
  Receive Date: 20160624
  Receipt Date: 20170210
  Transmission Date: 20170428
  Serious: Yes (Life-Threatening, Hospitalization, Other)
  Sender: FDA-Public Use
  Company Number: DE-BRISTOL-MYERS SQUIBB COMPANY-BMS-2016-049215

PATIENT
  Age: 77 Year
  Sex: Male
  Weight: 80 kg

DRUGS (1)
  1. APIXABAN [Suspect]
     Active Substance: APIXABAN
     Indication: CEREBROVASCULAR ACCIDENT PROPHYLAXIS
     Dosage: 2.5 MG, BID
     Route: 065

REACTIONS (9)
  - Haemorrhage intracranial [Not Recovered/Not Resolved]
  - Syncope [Unknown]
  - Transfusion [Unknown]
  - Spinal cord haemorrhage [Not Recovered/Not Resolved]
  - Transcatheter aortic valve implantation [Unknown]
  - Aortic valve stenosis [Unknown]
  - Prescribed underdose [Unknown]
  - Subdural haematoma [Unknown]
  - Seizure [Unknown]

NARRATIVE: CASE EVENT DATE: 20160613
